FAERS Safety Report 10214244 (Version 3)
Quarter: 2014Q4

REPORT INFORMATION
  Report Type: Spontaneous
  Country: RS (occurrence: None)
  Receive Date: 20140530
  Receipt Date: 20141021
  Transmission Date: 20150528
  Serious: Yes (Other)
  Sender: FDA-Public Use
  Company Number: KAD201405-000563

PATIENT
  Age: 60 Year
  Sex: Female
  Weight: 83 kg

DRUGS (4)
  1. TRASTUZUMAB [Suspect]
     Active Substance: TRASTUZUMAB
     Indication: BREAST CANCER
     Dosage: 6 MG/KG, EVERY 3 WEEKS
  2. INTERFERON ALFA-2A [Suspect]
     Active Substance: INTERFERON ALFA-2A
     Indication: HEPATITIS C
     Dosage: EVERY 3 WEEKS
  3. DOCETAXEL. [Suspect]
     Active Substance: DOCETAXEL
     Indication: BREAST CANCER
     Dosage: 75 MG/KG, EVERY 3 WEEKS
  4. RIBAVIRIN. [Suspect]
     Active Substance: RIBAVIRIN
     Indication: HEPATITIS C

REACTIONS (3)
  - Neutropenia [None]
  - Hepatitis C [None]
  - Hepatotoxicity [None]
